FAERS Safety Report 9863081 (Version 3)
Quarter: 2014Q1

REPORT INFORMATION
  Report Type: Report from Study
  Country: US (occurrence: US)
  Receive Date: 20140203
  Receipt Date: 20140320
  Transmission Date: 20141002
  Serious: Yes (Death, Life-Threatening, Hospitalization)
  Sender: FDA-Public Use
  Company Number: US-ACTELION-A-US2014-94140

PATIENT
  Age: 80 Year
  Sex: Female

DRUGS (4)
  1. VELETRI [Suspect]
     Indication: PULMONARY HYPERTENSION
     Dosage: 67.5 NG/KG, PER MIN
     Route: 042
     Dates: start: 20101129
  2. VELETRI [Suspect]
     Dosage: 80 NG/KG, PER MIN
     Route: 041
  3. COUMADIN [Concomitant]
  4. ADCIRCA [Concomitant]

REACTIONS (8)
  - Right ventricular failure [Fatal]
  - Renal disorder [Unknown]
  - Blood potassium decreased [Unknown]
  - Drain placement [Unknown]
  - Heart rate decreased [Unknown]
  - Fluid overload [Unknown]
  - Fall [Recovering/Resolving]
  - Hip fracture [Recovering/Resolving]
